FAERS Safety Report 9660578 (Version 2)
Quarter: 2013Q4

REPORT INFORMATION
  Report Type: Spontaneous
  Country: FR (occurrence: FR)
  Receive Date: 20131031
  Receipt Date: 20131115
  Transmission Date: 20140711
  Serious: Yes (Life-Threatening, Hospitalization, Other)
  Sender: FDA-Public Use
  Company Number: FR-PFIZER INC-2013305729

PATIENT
  Age: 93 Year
  Sex: Male
  Weight: 54 kg

DRUGS (13)
  1. ZITHROMAX [Suspect]
     Dosage: 250 MG, DAILY
     Route: 048
     Dates: start: 20130722, end: 20130729
  2. ZITHROMAX [Suspect]
     Dosage: 250 MG, 3X/WEEK
     Route: 048
     Dates: start: 20130730, end: 20130915
  3. AUGMENTIN [Concomitant]
     Dosage: UNK
     Dates: start: 20130722, end: 20130728
  4. DRUG, UNSPECIFIED [Concomitant]
     Dosage: UNK
  5. ICAZ - SLOW RELEASE [Concomitant]
     Dosage: UNK
  6. PERMIXON [Concomitant]
     Dosage: UNK
  7. OMEXEL [Concomitant]
     Dosage: UNK
  8. SEROPLEX [Concomitant]
     Dosage: UNK
  9. VESICARE [Concomitant]
     Dosage: UNK
  10. KLIPAL [Concomitant]
     Dosage: UNK
  11. DOLIPRANE [Concomitant]
     Dosage: UNK
  12. AIROMIR [Concomitant]
     Dosage: UNK
  13. NASONEX [Concomitant]
     Dosage: UNK

REACTIONS (5)
  - Agranulocytosis [Recovered/Resolved]
  - Pneumonia [Unknown]
  - Pyrexia [Unknown]
  - Aphthous stomatitis [Unknown]
  - Off label use [Unknown]
